FAERS Safety Report 10251948 (Version 1)
Quarter: 2014Q2

REPORT INFORMATION
  Report Type: Spontaneous
  Country: ES (occurrence: None)
  Receive Date: 20140619
  Receipt Date: 20140619
  Transmission Date: 20141212
  Serious: Yes (Other)
  Sender: FDA-Public Use
  Company Number: IPC201406-000305

PATIENT
  Age: 77 Year
  Sex: Female

DRUGS (2)
  1. METOCLOPRAMIDE HYDROCHLORIDE (METOCLOPRAMIDE HYDROCHLORIDE) (METOCLOPRAMIDE HYDROCHLORIDE) [Suspect]
     Indication: VOMITING
     Route: 048
  2. LINEZOLID (LINEZOLID) (LINEZOLID) [Suspect]
     Route: 042

REACTIONS (4)
  - Serotonin syndrome [None]
  - Drug interaction [None]
  - Leukocytosis [None]
  - Pneumonia [None]
